FAERS Safety Report 9167502 (Version 4)
Quarter: 2013Q2

REPORT INFORMATION
  Report Type: Spontaneous
  Country: US (occurrence: None)
  Receive Date: 20130301
  Receipt Date: 20130408
  Transmission Date: 20140414
  Serious: Yes (Life-Threatening, Hospitalization, Other)
  Sender: FDA-Public Use
  Company Number: 2013SGN00087

PATIENT
  Age: 53 Year
  Sex: Male

DRUGS (4)
  1. ADCETRIS [Suspect]
     Indication: HODGKIN^S DISEASE
     Dates: start: 20121214, end: 20130128
  2. PLAQUENIL (HYDROXYCHLOROQUINE SULFATE) [Concomitant]
  3. NORTRIPLYLINE (NORTRIPTYLINE HYDROCHLORIDE) [Concomitant]
  4. GABAPENTIN (GABAPENTIN) [Concomitant]

REACTIONS (7)
  - Guillain-Barre syndrome [None]
  - Posterior reversible encephalopathy syndrome [None]
  - Intracranial hypotension [None]
  - Blood pressure inadequately controlled [None]
  - Blindness cortical [None]
  - Aphasia [None]
  - Confusional state [None]
